FAERS Safety Report 6273989-6 (Version None)
Quarter: 2009Q3

REPORT INFORMATION
  Report Type: 
  Country: None (occurrence: None)
  Receive Date: 20090720
  Receipt Date: 20090708
  Transmission Date: 20100115
  Serious: No
  Sender: FDA-Public Use
  Company Number: US-ROCHE-642861

PATIENT
  Age: 30 Year
  Sex: Female

DRUGS (2)
  1. ACCUTANE [Suspect]
     Indication: ACNE
     Dosage: FORM: PILLS
     Route: 048
     Dates: start: 20081001, end: 20090101
  2. ACCUTANE [Suspect]
     Dosage: FORM: TABLET, FREQUENCY: 3 DAYS PER WEEK (MONDAY, WEDNESDAY AND FRIDAY)
     Route: 048
     Dates: start: 20090101, end: 20090425

REACTIONS (2)
  - NO ADVERSE EVENT [None]
  - PREGNANCY [None]
